FAERS Safety Report 15064263 (Version 1)
Quarter: 2018Q2

REPORT INFORMATION
  Report Type: Report from Study
  Country: US (occurrence: US)
  Receive Date: 20180625
  Receipt Date: 20180625
  Transmission Date: 20180711
  Serious: No
  Sender: FDA-Public Use
  Company Number: US-AMGEN-USASL2016064100

PATIENT
  Age: 81 Year
  Sex: Female
  Weight: 62.13 kg

DRUGS (1)
  1. REPATHA [Suspect]
     Active Substance: EVOLOCUMAB
     Indication: HYPERCHOLESTEROLAEMIA
     Dosage: 140 MG, EVERY OTHER WEDNESDAY
     Route: 065
     Dates: start: 2015

REACTIONS (2)
  - Underdose [Unknown]
  - Drug administration error [Unknown]
